FAERS Safety Report 8177200-0 (Version None)
Quarter: 2012Q1

REPORT INFORMATION
  Report Type: 
  Country: None (occurrence: None)
  Receive Date: 20120301
  Receipt Date: 20120220
  Transmission Date: 20120608
  Serious: Yes (Other)
  Sender: FDA-Public Use
  Company Number: US-JNJFOC-20120210932

PATIENT
  Sex: Male
  Weight: 104.33 kg

DRUGS (7)
  1. PLAVIX [Concomitant]
     Indication: CARDIAC DISORDER
     Route: 048
     Dates: start: 20020101
  2. TRAMADOL HCL [Concomitant]
     Indication: PAIN MANAGEMENT
     Route: 048
     Dates: start: 20020101
  3. REMICADE [Suspect]
     Indication: RHEUMATOID ARTHRITIS
     Route: 042
     Dates: start: 20120202
  4. METOPROLOL SUCCINATE [Concomitant]
     Indication: CARDIAC DISORDER
     Route: 048
     Dates: start: 20020101
  5. SIMVASTATIN [Concomitant]
     Indication: BLOOD CHOLESTEROL INCREASED
     Route: 048
     Dates: start: 20110201
  6. REMICADE [Suspect]
     Route: 042
     Dates: start: 20110601, end: 20120202
  7. QUINAPRIL [Concomitant]
     Indication: CARDIAC DISORDER
     Route: 048
     Dates: start: 20020101

REACTIONS (3)
  - NEPHROLITHIASIS [None]
  - JOINT SWELLING [None]
  - DRUG INEFFECTIVE [None]
